FAERS Safety Report 7733351 (Version 4)
Quarter: 2013Q4

REPORT INFORMATION
  Report Type: Spontaneous
  Country: US (occurrence: US)
  Receive Date: 20101223
  Receipt Date: 20131025
  Transmission Date: 20140711
  Serious: No
  Sender: FDA-Public Use
  Company Number: US-JNJFOC-20101206252

PATIENT
  Age: 62 Year
  Sex: Male

DRUGS (4)
  1. SANDOZ FENTANYL TRANSDERMAL SYSTEM [Suspect]
     Indication: PAIN
     Dosage: NDC#: 0781-7243-55
     Route: 062
     Dates: start: 20091008
  2. PROMETHAZINE [Concomitant]
     Indication: NAUSEA
     Dates: start: 20101210
  3. HYDROCODONE [Concomitant]
     Indication: PAIN
     Dates: start: 20101210, end: 20101218
  4. HYDROMORPHONE [Concomitant]
     Indication: PAIN
     Dates: start: 20101210, end: 20101220

REACTIONS (4)
  - Nausea [Recovered/Resolved]
  - Poor quality drug administered [Unknown]
  - Dizziness [Recovered/Resolved]
  - Product physical issue [Unknown]
